FAERS Safety Report 4822172-7 (Version None)
Quarter: 2005Q4

REPORT INFORMATION
  Report Type: 
  Country: None (occurrence: None)
  Receive Date: 20051103
  Receipt Date: 20051024
  Transmission Date: 20060501
  Serious: Yes (Other)
  Sender: FDA-Public Use
  Company Number: 2005146319

PATIENT
  Age: 69 Year
  Sex: Female
  Weight: 68.0396 kg

DRUGS (6)
  1. ROLAIDS [Suspect]
     Indication: GASTROOESOPHAGEAL REFLUX DISEASE
     Dosage: 2 TABS TWICE PER DAY, ORAL
     Route: 048
     Dates: start: 20050101, end: 20051001
  2. MULTIVITAMINS (ASCORBIC ACID, ERGOCALCIFEROL, FOLIC ACID, NICOTINAMIDE [Concomitant]
  3. CALCIUM (CALCIUM) [Concomitant]
  4. ASCORBIC ACID [Concomitant]
  5. TOCOPHEROL (TOCOPHEROL) [Concomitant]
  6. ADEMETIONINE (ADEMETIONINE) [Concomitant]

REACTIONS (2)
  - HAEMATOCHEZIA [None]
  - POLYP COLORECTAL [None]
